FAERS Safety Report 9750233 (Version 2)
Quarter: 2014Q1

REPORT INFORMATION
  Report Type: Report from Study
  Country: GB (occurrence: GB)
  Receive Date: 20131212
  Receipt Date: 20140103
  Transmission Date: 20141002
  Serious: Yes (Life-Threatening, Hospitalization, Other)
  Sender: FDA-Public Use
  Company Number: GB-VIIV HEALTHCARE LIMITED-B0952307A

PATIENT
  Age: 37 Year
  Sex: Female
  Weight: 77.6 kg

DRUGS (4)
  1. MARAVIROC [Suspect]
     Indication: HIV INFECTION
     Dosage: 150MG TWICE PER DAY
     Route: 048
     Dates: start: 20130923
  2. RALTEGRAVIR [Concomitant]
     Dosage: 400MG TWICE PER DAY
     Route: 048
  3. DARUNAVIR [Concomitant]
     Dosage: 800MG PER DAY
     Route: 048
  4. RITONAVIR [Concomitant]
     Dosage: 100MG PER DAY
     Route: 048

REACTIONS (1)
  - Aneurysm ruptured [Recovered/Resolved]
